FAERS Safety Report 21906617 (Version 1)
Quarter: 2023Q1

REPORT INFORMATION
  Report Type: Spontaneous
  Country: US (occurrence: US)
  Receive Date: 20230125
  Receipt Date: 20230125
  Transmission Date: 20230417
  Serious: No
  Sender: FDA-Public Use
  Company Number: US-JNJFOC-20230142001

PATIENT
  Age: 66 Year
  Sex: Female
  Weight: 79.450 kg

DRUGS (2)
  1. CONCERTA [Suspect]
     Active Substance: METHYLPHENIDATE HYDROCHLORIDE
     Indication: Attention deficit hyperactivity disorder
     Route: 065
     Dates: start: 2003
  2. CONCERTA [Suspect]
     Active Substance: METHYLPHENIDATE HYDROCHLORIDE
     Route: 065
     Dates: start: 202212, end: 202212

REACTIONS (4)
  - Product dose omission issue [Unknown]
  - Decreased interest [Unknown]
  - Product availability issue [Unknown]
  - Nausea [Unknown]
